FAERS Safety Report 21295180 (Version 1)
Quarter: 2022Q3

REPORT INFORMATION
  Report Type: Spontaneous
  Country: US (occurrence: US)
  Receive Date: 20220905
  Receipt Date: 20220905
  Transmission Date: 20221027
  Serious: No
  Sender: FDA-Public Use
  Company Number: US-009507513-2208USA010091

PATIENT
  Age: 66 Year
  Sex: Male

DRUGS (4)
  1. MOLNUPIRAVIR [Interacting]
     Active Substance: MOLNUPIRAVIR
     Indication: COVID-19 treatment
     Dosage: 4 TABLETS EVERY TWELVE HOURS
     Route: 048
     Dates: start: 20220818, end: 20220822
  2. WARFARIN [Interacting]
     Active Substance: WARFARIN
     Dosage: 1 MG ONCE A DAY
  3. LEVOTHYROXINE [Concomitant]
     Active Substance: LEVOTHYROXINE
     Dosage: 75 MICROGRAM
  4. ATENOLOL [Concomitant]
     Active Substance: ATENOLOL
     Dosage: 25 MG TAKE ONCE IN AM AND ONCE IN PM

REACTIONS (2)
  - International normalised ratio increased [Recovering/Resolving]
  - Drug interaction [Recovering/Resolving]

NARRATIVE: CASE EVENT DATE: 20220818
